FAERS Safety Report 20834793 (Version 1)
Quarter: 2022Q2

REPORT INFORMATION
  Report Type: Spontaneous
  Country: US (occurrence: US)
  Receive Date: 20220516
  Receipt Date: 20220516
  Transmission Date: 20220721
  Serious: No
  Sender: FDA-Public Use
  Company Number: US-NOVARTISTESTPH-NVSC2022US112246

PATIENT
  Sex: Female

DRUGS (1)
  1. COSENTYX [Suspect]
     Active Substance: SECUKINUMAB
     Indication: Product used for unknown indication
     Dosage: 150 MG, QW (ONCE A WEEK FOR FIVE WEEKS AND THEN AFTER THAT EVERY 28 DAYS)
     Route: 065
     Dates: start: 20220423

REACTIONS (3)
  - Psoriasis [Recovering/Resolving]
  - Blister [Recovering/Resolving]
  - Device delivery system issue [Unknown]
